FAERS Safety Report 5990500-5 (Version None)
Quarter: 2008Q4

REPORT INFORMATION
  Report Type: 
  Country: None (occurrence: None)
  Receive Date: 20081202
  Receipt Date: 20080403
  Transmission Date: 20090506
  Serious: Yes (Other)
  Sender: FDA-Public Use
  Company Number: WAES 0804USA01310

PATIENT
  Age: 76 Year
  Sex: Female
  Weight: 68.9467 kg

DRUGS (1)
  1. FOSAMAX [Suspect]
     Indication: OSTEOPOROSIS
     Dosage: 70 MG/WKY/PO
     Route: 048
     Dates: start: 19980101, end: 20021023

REACTIONS (23)
  - ANGINA PECTORIS [None]
  - ARTHRALGIA [None]
  - BACK PAIN [None]
  - BLOOD CHOLESTEROL INCREASED [None]
  - CARDIOMYOPATHY [None]
  - CHEST PAIN [None]
  - COMPRESSION FRACTURE [None]
  - DYSPNOEA EXERTIONAL [None]
  - EJECTION FRACTION DECREASED [None]
  - GASTROOESOPHAGEAL REFLUX DISEASE [None]
  - GRAVITATIONAL OEDEMA [None]
  - HYPERLIPIDAEMIA [None]
  - HYPOKINESIA [None]
  - IRON DEFICIENCY ANAEMIA [None]
  - MITRAL VALVE INCOMPETENCE [None]
  - MYOCARDIAL ISCHAEMIA [None]
  - OSTEONECROSIS [None]
  - POLLAKIURIA [None]
  - PULMONARY HYPERTENSION [None]
  - RHINITIS PERENNIAL [None]
  - SCIATICA [None]
  - SPINAL FRACTURE [None]
  - TRICUSPID VALVE INCOMPETENCE [None]
